FAERS Safety Report 11057849 (Version 6)
Quarter: 2017Q2

REPORT INFORMATION
  Report Type: Report from Study
  Country: CA (occurrence: CA)
  Receive Date: 20150423
  Receipt Date: 20170503
  Transmission Date: 20170829
  Serious: Yes (Other)
  Sender: FDA-Public Use
  Company Number: CA-ROCHE-1545638

PATIENT
  Age: 43 Year
  Sex: Male
  Weight: 100 kg

DRUGS (5)
  1. ACTEMRA [Suspect]
     Active Substance: TOCILIZUMAB
     Dosage: DATE OF INFUSION 01/MAY/2017
     Route: 042
     Dates: start: 20140305
  2. FOLIC ACID. [Concomitant]
     Active Substance: FOLIC ACID
  3. SULFASALAZINE. [Concomitant]
     Active Substance: SULFASALAZINE
  4. ACTEMRA [Suspect]
     Active Substance: TOCILIZUMAB
     Indication: RHEUMATOID ARTHRITIS
     Route: 042
     Dates: start: 20140206
  5. METHOTREXATE. [Concomitant]
     Active Substance: METHOTREXATE
     Route: 065

REACTIONS (9)
  - Body temperature decreased [Unknown]
  - Pharyngeal ulceration [Not Recovered/Not Resolved]
  - Nodule [Recovered/Resolved]
  - Blood pressure increased [Unknown]
  - Weight decreased [Unknown]
  - Weight increased [Unknown]
  - Pain [Not Recovered/Not Resolved]
  - Oral herpes [Not Recovered/Not Resolved]
  - Joint swelling [Recovered/Resolved]

NARRATIVE: CASE EVENT DATE: 2015
